FAERS Safety Report 6291473-0 (Version None)
Quarter: 2009Q3

REPORT INFORMATION
  Report Type: 
  Country: None (occurrence: None)
  Receive Date: 20090730
  Receipt Date: 20090727
  Transmission Date: 20100115
  Serious: Yes (Hospitalization, Other)
  Sender: FDA-Public Use
  Company Number: FR-ROXANE LABORATORIES, INC.-2009-RO-00752RO

PATIENT
  Age: 85 Year
  Sex: Male
  Weight: 80 kg

DRUGS (22)
  1. MORPHINE [Suspect]
     Indication: POSTOPERATIVE ANALGESIA
  2. MORPHINE [Suspect]
  3. MORPHINE [Suspect]
  4. FLECAINIDE ACETATE [Suspect]
     Indication: ISCHAEMIC CARDIOMYOPATHY
  5. INDAPAMIDE [Suspect]
     Indication: ISCHAEMIC CARDIOMYOPATHY
  6. DIPYRIDAMOLE [Suspect]
     Indication: ISCHAEMIC CARDIOMYOPATHY
  7. ATARAX [Suspect]
     Indication: PREMEDICATION
     Dosage: 100 MG
  8. SUFENTANIL [Suspect]
     Indication: INDUCTION AND MAINTENANCE OF ANAESTHESIA
     Dosage: 20 MCG
  9. HYPNOMIDATE [Suspect]
     Indication: INDUCTION OF ANAESTHESIA
     Dosage: 30 MG
  10. CISATRACURIUM [Suspect]
     Indication: INDUCTION AND MAINTENANCE OF ANAESTHESIA
     Dosage: 16 RT
  11. ISOFLURANE [Suspect]
     Indication: MAINTENANCE OF ANAESTHESIA
  12. ACETAMINOPHEN [Suspect]
     Indication: POSTOPERATIVE ANALGESIA
  13. TOPALGIC [Suspect]
     Indication: POSTOPERATIVE ANALGESIA
  14. EPHEDRINE [Suspect]
     Indication: HYPERTENSION
  15. DROPERIDOL [Suspect]
     Indication: ANALGESIA
  16. OXYGEN [Suspect]
     Route: 055
  17. OXYGEN [Suspect]
     Route: 055
  18. NALOXONE [Suspect]
     Indication: OVERDOSE
  19. TENORMIN [Concomitant]
     Indication: CARDIOMYOPATHY
  20. KARDEGIC [Concomitant]
     Indication: CARDIOMYOPATHY
  21. LOVENOX [Concomitant]
     Indication: CARDIOMYOPATHY
  22. NITROGLYCERIN [Concomitant]
     Indication: CARDIOMYOPATHY

REACTIONS (10)
  - ACUTE RESPIRATORY DISTRESS SYNDROME [None]
  - BLOOD CREATININE INCREASED [None]
  - BRADYCARDIA [None]
  - HAEMOGLOBINAEMIA [None]
  - HYPERTENSION [None]
  - MIOSIS [None]
  - MYOCARDIAL ISCHAEMIA [None]
  - OVERDOSE [None]
  - SOMNOLENCE [None]
  - TROPONIN INCREASED [None]
